FAERS Safety Report 12468159 (Version 1)
Quarter: 2016Q2

REPORT INFORMATION
  Report Type: Spontaneous
  Country: US (occurrence: None)
  Receive Date: 20160614
  Receipt Date: 20160614
  Transmission Date: 20160815
  Serious: No
  Sender: FDA-Public Use
  Company Number: None

PATIENT
  Age: 66 Year
  Sex: Female

DRUGS (1)
  1. ENBREL [Suspect]
     Active Substance: ETANERCEPT
     Indication: RHEUMATOID ARTHRITIS
     Route: 058
     Dates: start: 20160613

REACTIONS (5)
  - Diarrhoea [None]
  - Mental impairment [None]
  - Loss of consciousness [None]
  - Headache [None]
  - Nausea [None]

NARRATIVE: CASE EVENT DATE: 20160613
